FAERS Safety Report 6158425-2 (Version None)
Quarter: 2009Q2

REPORT INFORMATION
  Report Type: 
  Country: None (occurrence: None)
  Receive Date: 20090417
  Receipt Date: 20090402
  Transmission Date: 20091009
  Serious: Yes (Other)
  Sender: FDA-Public Use
  Company Number: CA-BAYER-200916763NA

PATIENT
  Age: 54 Year
  Sex: Female
  Weight: 66 kg

DRUGS (2)
  1. AVELOX [Suspect]
     Indication: SINUSITIS
     Dosage: TOTAL DAILY DOSE: 400 MG  UNIT DOSE: 400 MG
     Dates: start: 20090321, end: 20090325
  2. SINGULAIR [Concomitant]

REACTIONS (11)
  - BACK PAIN [None]
  - BLOOD URINE PRESENT [None]
  - CHROMATURIA [None]
  - DYSSTASIA [None]
  - GAIT DISTURBANCE [None]
  - HAEMORRHAGE URINARY TRACT [None]
  - HYPERAESTHESIA [None]
  - MUSCULOSKELETAL STIFFNESS [None]
  - PAIN OF SKIN [None]
  - SKIN BURNING SENSATION [None]
  - VASCULAR RUPTURE [None]
